FAERS Safety Report 21869771 (Version 1)
Quarter: 2023Q1

REPORT INFORMATION
  Report Type: Report from Study
  Country: US (occurrence: US)
  Receive Date: 20230117
  Receipt Date: 20230117
  Transmission Date: 20230417
  Serious: No
  Sender: FDA-Public Use
  Company Number: US-ABBVIE-4269794

PATIENT
  Sex: Female
  Weight: 102.05 kg

DRUGS (1)
  1. SKYRIZI [Suspect]
     Active Substance: RISANKIZUMAB-RZAA
     Indication: Psoriasis
     Route: 058
     Dates: start: 20210722

REACTIONS (6)
  - Ear pruritus [Recovered/Resolved]
  - Dyspepsia [Unknown]
  - Blood cholesterol [Unknown]
  - Arthritis [Recovered/Resolved]
  - Pruritus [Recovered/Resolved]
  - Dry skin [Unknown]
